FAERS Safety Report 4494498-0 (Version None)
Quarter: 2004Q4

REPORT INFORMATION
  Report Type: 
  Country: None (occurrence: None)
  Receive Date: 20041102
  Receipt Date: 20041020
  Transmission Date: 20050328
  Serious: Yes (Hospitalization, Other)
  Sender: FDA-Public Use
  Company Number: 2004081439

PATIENT
  Age: 12 Year
  Sex: Male

DRUGS (4)
  1. ZARONTIN SYRUP [Suspect]
     Indication: EPILEPSY
     Dosage: 12 CC, ORAL
     Route: 048
     Dates: start: 20040601, end: 20040927
  2. VALPROATE SODIUM [Suspect]
     Indication: EPILEPSY
     Dosage: 1200 MG, ORAL
     Route: 048
     Dates: start: 20040501, end: 20041004
  3. CLONAZEPAM [Concomitant]
  4. CLOBAZAM (CLOBAZAM) [Concomitant]

REACTIONS (5)
  - ARTHRITIS [None]
  - DRUG HYPERSENSITIVITY [None]
  - LYMPHADENOPATHY [None]
  - PYREXIA [None]
  - TONSILLITIS [None]
